FAERS Safety Report 18300356 (Version 1)
Quarter: 2020Q3

REPORT INFORMATION
  Report Type: Spontaneous
  Country: US (occurrence: US)
  Receive Date: 20200923
  Receipt Date: 20200923
  Transmission Date: 20201103
  Serious: Yes (Other)
  Sender: FDA-Public Use
  Company Number: US-JNJFOC-20200938933

PATIENT
  Sex: Female

DRUGS (7)
  1. OXYCODONE [Suspect]
     Active Substance: OXYCODONE
     Indication: PAIN PROPHYLAXIS
     Route: 064
  2. HYDROCODONE [Suspect]
     Active Substance: HYDROCODONE
     Indication: PAIN PROPHYLAXIS
     Route: 064
  3. OXYCONTIN [Suspect]
     Active Substance: OXYCODONE HYDROCHLORIDE
     Indication: PAIN PROPHYLAXIS
     Route: 064
  4. ALPRAZOLAM. [Suspect]
     Active Substance: ALPRAZOLAM
     Indication: PAIN PROPHYLAXIS
     Route: 064
  5. HYDROCODONE BITARTRATE AND ACETAMINOPHEN [Suspect]
     Active Substance: ACETAMINOPHEN\HYDROCODONE BITARTRATE
     Indication: PAIN PROPHYLAXIS
     Route: 064
  6. DIPHENHYDRAMINE HYDROCHLORIDE. [Suspect]
     Active Substance: DIPHENHYDRAMINE HYDROCHLORIDE
     Indication: PAIN PROPHYLAXIS
     Route: 064
  7. OXYCODONE [Suspect]
     Active Substance: OXYCODONE
     Indication: PAIN PROPHYLAXIS
     Route: 064

REACTIONS (4)
  - Developmental delay [Unknown]
  - Cardiac disorder [Unknown]
  - Drug dependence [Unknown]
  - Foetal exposure during pregnancy [Unknown]
